FAERS Safety Report 22192118 (Version 1)
Quarter: 2023Q2

REPORT INFORMATION
  Report Type: Spontaneous
  Country: US (occurrence: US)
  Receive Date: 20230410
  Receipt Date: 20230410
  Transmission Date: 20230722
  Serious: Yes (Other)
  Sender: FDA-Public Use
  Company Number: US-PFIZER INC-PV202300062145

PATIENT
  Age: 41 Year
  Sex: Female

DRUGS (2)
  1. XALKORI [Suspect]
     Active Substance: CRIZOTINIB
     Indication: Thyroid cancer
     Dosage: 250 MG
     Dates: start: 20220912, end: 20221114
  2. XALKORI [Suspect]
     Active Substance: CRIZOTINIB
     Dosage: 250 MG
     Dates: start: 20221201

REACTIONS (6)
  - Necrotic lymphadenopathy [Unknown]
  - Liver function test increased [Unknown]
  - Blood glucose increased [Unknown]
  - Neoplasm progression [Unknown]
  - Off label use [Unknown]
  - Drug effective for unapproved indication [Unknown]

NARRATIVE: CASE EVENT DATE: 20221001
